FAERS Safety Report 16401952 (Version 2)
Quarter: 2019Q2

REPORT INFORMATION
  Report Type: Spontaneous
  Country: JP (occurrence: JP)
  Receive Date: 20190607
  Receipt Date: 20190611
  Transmission Date: 20190711
  Serious: Yes (Hospitalization)
  Sender: FDA-Public Use
  Company Number: JP-ASTELLAS-2019JP010871

PATIENT
  Age: 79 Year
  Sex: Female

DRUGS (1)
  1. BETANIS [Suspect]
     Active Substance: MIRABEGRON
     Indication: PRODUCT USED FOR UNKNOWN INDICATION
     Dosage: UNK UNK, UNKNOWN FREQ.
     Route: 048

REACTIONS (1)
  - Intestinal obstruction [Recovered/Resolved]

NARRATIVE: CASE EVENT DATE: 201905
